FAERS Safety Report 8552034-3 (Version None)
Quarter: 2012Q3

REPORT INFORMATION
  Report Type: 
  Country: None (occurrence: None)
  Receive Date: 20120731
  Receipt Date: 20120716
  Transmission Date: 20120928
  Serious: Yes (Hospitalization)
  Sender: FDA-Public Use
  Company Number: SE-AMGEN-US335064

PATIENT
  Age: 63 Year
  Sex: Female

DRUGS (2)
  1. ETANERCEPT [Suspect]
     Indication: PRODUCT USED FOR UNKNOWN INDICATION
     Dosage: 50 MG, WEEKLY
     Dates: start: 20080101, end: 20081215
  2. METHOTREXATE [Concomitant]
     Dosage: 5 MG, QWK
     Route: 048

REACTIONS (1)
  - CARDIAC FAILURE [None]
